FAERS Safety Report 21338777 (Version 1)
Quarter: 2022Q3

REPORT INFORMATION
  Report Type: Report from Study
  Country: US (occurrence: US)
  Receive Date: 20220915
  Receipt Date: 20220915
  Transmission Date: 20221026
  Serious: Yes (Other)
  Sender: FDA-Public Use
  Company Number: US-BRISTOL-MYERS SQUIBB COMPANY-2022-104115

PATIENT
  Age: 67 Year
  Sex: Male
  Weight: 86.18 kg

DRUGS (2)
  1. REVLIMID [Suspect]
     Active Substance: LENALIDOMIDE
     Indication: Plasma cell myeloma in remission
     Route: 048
     Dates: start: 20210302
  2. ACETAMINOPHEN\ASCORBIC ACID [Concomitant]
     Active Substance: ACETAMINOPHEN\ASCORBIC ACID
     Indication: Product used for unknown indication
     Route: 065

REACTIONS (9)
  - Anal incontinence [Unknown]
  - Diarrhoea [Unknown]
  - Balance disorder [Unknown]
  - Asthenia [Unknown]
  - Defaecation urgency [Unknown]
  - Taste disorder [Unknown]
  - Dizziness [Unknown]
  - Urinary incontinence [Unknown]
  - Off label use [Unknown]
